FAERS Safety Report 7811999-5 (Version None)
Quarter: 2011Q4

REPORT INFORMATION
  Report Type: 
  Country: None (occurrence: None)
  Receive Date: 20111013
  Receipt Date: 20111003
  Transmission Date: 20120403
  Serious: Yes (Other)
  Sender: FDA-Public Use
  Company Number: GB-BRACCO-000412

PATIENT
  Age: 61 Year
  Sex: Female

DRUGS (1)
  1. IOPAMIDOL [Suspect]
     Indication: DIAGNOSTIC PROCEDURE
     Dosage: INTRAVENOUS INJECTION IN THE LEFT ANTE-CUBITAL FOSSA
     Route: 042
     Dates: start: 20110727, end: 20110727

REACTIONS (2)
  - MYALGIA [None]
  - PAIN IN EXTREMITY [None]
